FAERS Safety Report 8683615 (Version 3)
Quarter: 2012Q4

REPORT INFORMATION
  Report Type: 
  Country: JP (occurrence: JP)
  Receive Date: 20120726
  Receipt Date: 20121206
  Transmission Date: 20130627
  Serious: Yes (Other)
  Sender: FDA-Public Use
  Company Number: JP-009507513-1207JPN008145

PATIENT
  Age: 52 Year
  Sex: Male
  Weight: 72 kg

DRUGS (11)
  1. PEGINTRON [Suspect]
     Indication: CHRONIC HEPATITIS C
     Dosage: 1.5 Microgram per kilogram, qw
     Route: 058
     Dates: start: 20120507, end: 20121016
  2. REBETOL [Suspect]
     Indication: CHRONIC HEPATITIS C
     Dosage: 800 mg, qd
     Route: 048
     Dates: start: 20120507, end: 20120527
  3. REBETOL [Suspect]
     Dosage: 400 mg, qd
     Route: 048
     Dates: start: 20120528, end: 20120603
  4. REBETOL [Suspect]
     Dosage: 200 mg, qd
     Route: 048
     Dates: start: 20120604, end: 20120625
  5. REBETOL [Suspect]
     Dosage: 400 mg, qd
     Route: 048
     Dates: start: 20120625, end: 20120702
  6. REBETOL [Suspect]
     Dosage: 600 mg, qd
     Route: 048
     Dates: start: 20120702, end: 20120709
  7. REBETOL [Suspect]
     Dosage: 800 mg, qd
     Route: 048
     Dates: start: 20120709, end: 20121022
  8. TELAVIC [Suspect]
     Indication: CHRONIC HEPATITIS C
     Dosage: 2250 mg qd
     Route: 048
     Dates: start: 20120507, end: 20120729
  9. ZYLORIC [Concomitant]
     Dosage: 100mg, qd, formulation: POR
     Route: 048
     Dates: start: 20120604
  10. LENDORMIN D [Concomitant]
     Dosage: UNK, formulation: POR
     Route: 048
  11. LENDORMIN D [Concomitant]
     Dosage: UNK
     Route: 048

REACTIONS (1)
  - Hyperuricaemia [Not Recovered/Not Resolved]
